FAERS Safety Report 8155960-2 (Version None)
Quarter: 2012Q1

REPORT INFORMATION
  Report Type: 
  Country: None (occurrence: None)
  Receive Date: 20120216
  Receipt Date: 20120208
  Transmission Date: 20120608
  Serious: Yes (Other)
  Sender: FDA-Public Use
  Company Number: AUR-APL-2012-00875

PATIENT
  Age: 25 Year
  Sex: Female
  Weight: 74 kg

DRUGS (4)
  1. RISPERDAL [Suspect]
     Indication: PERSONALITY DISORDER
     Dosage: (1 MG, 1 D), ORAL
     Route: 048
     Dates: end: 20110901
  2. ACTRAPID (INSULIN) [Concomitant]
  3. PROTAPHANE (INSULIN HUMAN INJECTION, ISOPHANE) [Concomitant]
  4. SERTRALINE HYDROCHLORIDE [Suspect]
     Indication: PERSONALITY DISORDER
     Dosage: (150 MG, 1 D), ORAL
     Route: 048

REACTIONS (2)
  - GESTATIONAL DIABETES [None]
  - MATERNAL EXPOSURE DURING PREGNANCY [None]
